FAERS Safety Report 7305496-3 (Version None)
Quarter: 2011Q1

REPORT INFORMATION
  Report Type: 
  Country: None (occurrence: None)
  Receive Date: 20110210
  Receipt Date: 20110203
  Transmission Date: 20110831
  Serious: Yes (Other)
  Sender: FDA-Public Use
  Company Number: MSTR-NO-1006S-0198

PATIENT
  Age: 41 Year
  Sex: Male
  Weight: 77.7 kg

DRUGS (1)
  1. METASTRON [Suspect]
     Indication: METASTATIC PAIN
     Dosage: SINGLE DOSE, I.V.
     Route: 042
     Dates: start: 20090827, end: 20090827

REACTIONS (4)
  - ANAEMIA [None]
  - BONE PAIN [None]
  - METASTATIC GASTRIC CANCER [None]
  - NEOPLASM MALIGNANT [None]
